FAERS Safety Report 13779946 (Version 3)
Quarter: 2017Q3

REPORT INFORMATION
  Report Type: Spontaneous
  Country: DE (occurrence: DE)
  Receive Date: 20170723
  Receipt Date: 20170910
  Transmission Date: 20171127
  Serious: Yes (Death, Other)
  Sender: FDA-Public Use
  Company Number: DE-MYLANLABS-2017M1045095

PATIENT
  Sex: Male
  Weight: 80 kg

DRUGS (3)
  1. CLOZAPINE. [Suspect]
     Active Substance: CLOZAPINE
     Indication: SCHIZOPHRENIA
     Dosage: UNK
     Route: 048
  2. CLOZAPINE. [Suspect]
     Active Substance: CLOZAPINE
     Dosage: 100 MG, QD
     Route: 048
  3. CLOZAPINE. [Suspect]
     Active Substance: CLOZAPINE
     Dosage: UNK
     Route: 048

REACTIONS (10)
  - Megacolon [Fatal]
  - Intestinal dilatation [Fatal]
  - Ileus paralytic [Fatal]
  - Restlessness [Unknown]
  - Shock [Fatal]
  - C-reactive protein increased [Unknown]
  - Faecaloma [Fatal]
  - Circulatory collapse [Fatal]
  - Cardiac failure [Fatal]
  - Infection [Fatal]
